FAERS Safety Report 9277199 (Version 1)
Quarter: 2013Q2

REPORT INFORMATION
  Report Type: Spontaneous
  Country: CN (occurrence: CN)
  Receive Date: 20130508
  Receipt Date: 20130508
  Transmission Date: 20140414
  Serious: Yes (Hospitalization, Other)
  Sender: FDA-Public Use
  Company Number: CN-ROCHE-1221026

PATIENT
  Age: 45 Year
  Sex: Male

DRUGS (1)
  1. MABTHERA [Suspect]
     Indication: DIFFUSE LARGE B-CELL LYMPHOMA
     Dosage: 600 MG/60 ML
     Route: 041
     Dates: start: 201211

REACTIONS (5)
  - Lung infection [Not Recovered/Not Resolved]
  - Neoplasm [Not Recovered/Not Resolved]
  - Metastases to lymph nodes [Not Recovered/Not Resolved]
  - Drug ineffective [Unknown]
  - Suspected counterfeit product [Unknown]
